FAERS Safety Report 15826005 (Version 4)
Quarter: 2019Q2

REPORT INFORMATION
  Report Type: Spontaneous
  Country: SK (occurrence: SK)
  Receive Date: 20190115
  Receipt Date: 20190626
  Transmission Date: 20190711
  Serious: Yes (Hospitalization, Other)
  Sender: FDA-Public Use
  Company Number: SK-MYLANLABS-2019M1002654

PATIENT
  Age: 30 Year
  Sex: Male

DRUGS (8)
  1. QUETIAPINE. [Concomitant]
     Active Substance: QUETIAPINE
     Indication: BIPOLAR DISORDER
     Dosage: 500 MILLIGRAM (PRO DIE (EXTENDED-RELEASE FORM)
     Route: 065
  2. ESCITALOPRAM [Suspect]
     Active Substance: ESCITALOPRAM OXALATE
     Indication: BIPOLAR DISORDER
     Dosage: 10 MILLIGRAM, QD
     Route: 065
     Dates: start: 200507
  3. SERTRALINE [Suspect]
     Active Substance: SERTRALINE HYDROCHLORIDE
     Indication: DEPRESSION
     Dosage: UNK
     Dates: start: 2014
  4. VALPROIC ACID. [Suspect]
     Active Substance: VALPROIC ACID
     Indication: BIPOLAR DISORDER
     Dosage: UNK
     Route: 048
  5. OLANZAPINE. [Suspect]
     Active Substance: OLANZAPINE
     Indication: BIPOLAR DISORDER
     Dosage: 15 MILLIGRAM, QD
     Route: 048
  6. OLANZAPINE. [Suspect]
     Active Substance: OLANZAPINE
     Dosage: UNK (DISPERSION)
     Route: 048
     Dates: start: 2012
  7. ESCITALOPRAM [Suspect]
     Active Substance: ESCITALOPRAM OXALATE
     Dosage: 5 MILLIGRAM, QD
     Route: 065
     Dates: start: 2011
  8. OLANZAPINE. [Suspect]
     Active Substance: OLANZAPINE
     Dosage: 10 MILLIGRAM, QD
     Route: 048
     Dates: start: 2011

REACTIONS (16)
  - Antisocial behaviour [Unknown]
  - Anhedonia [Unknown]
  - Delusion [Unknown]
  - Bradyphrenia [Unknown]
  - Weight increased [Unknown]
  - Off label use [Unknown]
  - Asthenia [Unknown]
  - Apathy [Unknown]
  - Mental impairment [Unknown]
  - Sleep disorder [Unknown]
  - Drug ineffective [Unknown]
  - Abulia [Unknown]
  - Mania [Unknown]
  - Hypomania [Unknown]
  - Product use in unapproved indication [Unknown]
  - Depression [Unknown]

NARRATIVE: CASE EVENT DATE: 2014
